FAERS Safety Report 5706934-X (Version None)
Quarter: 2008Q2

REPORT INFORMATION
  Report Type: 
  Country: None (occurrence: None)
  Receive Date: 20080416
  Receipt Date: 20080404
  Transmission Date: 20081010
  Serious: Yes (Hospitalization)
  Sender: FDA-Public Use
  Company Number: JP-AMGEN-US263336

PATIENT
  Sex: Female
  Weight: 35 kg

DRUGS (8)
  1. ENBREL [Suspect]
     Indication: RHEUMATOID ARTHRITIS
     Route: 058
     Dates: start: 20070220, end: 20071113
  2. MAGNESIUM OXIDE [Concomitant]
     Route: 048
     Dates: start: 20070220
  3. FERROGRADUMET [Concomitant]
     Route: 048
     Dates: start: 20070926
  4. ISCOTIN [Concomitant]
     Route: 048
     Dates: start: 20070220
  5. FOSAMAX [Concomitant]
     Route: 048
     Dates: start: 20070928
  6. RALOXIFENE HYDROCHLORIDE [Concomitant]
     Route: 048
     Dates: start: 20070417
  7. ULCERMIN [Concomitant]
     Route: 048
     Dates: start: 20070220
  8. PREDNISOLONE [Concomitant]
     Route: 048
     Dates: start: 20070220

REACTIONS (4)
  - DRUG ERUPTION [None]
  - EOSINOPHIL COUNT INCREASED [None]
  - LYMPHOCYTE STIMULATION TEST POSITIVE [None]
  - PAIN [None]
